FAERS Safety Report 22842024 (Version 2)
Quarter: 2023Q4

REPORT INFORMATION
  Report Type: Report from Study
  Country: US (occurrence: US)
  Receive Date: 20230821
  Receipt Date: 20231001
  Transmission Date: 20240110
  Serious: Yes (Other)
  Sender: FDA-Public Use
  Company Number: US-JNJFOC-20230839028

PATIENT
  Age: 16 Year
  Sex: Female
  Weight: 127.12 kg

DRUGS (4)
  1. INFLIXIMAB [Suspect]
     Active Substance: INFLIXIMAB
     Indication: Inflammatory bowel disease
     Dosage: LAST ADMINISTRATION REPORTED WAS ON 27-AUG-2018
     Route: 041
     Dates: start: 20090319
  2. INFLIXIMAB [Suspect]
     Active Substance: INFLIXIMAB
     Dosage: LAST ADMINISTRATION REPORTED WAS ON 09-DEC-2019
     Route: 041
     Dates: start: 20190624
  3. INFLECTRA [Concomitant]
     Active Substance: INFLIXIMAB-DYYB
     Dosage: LAST ADMINISTRATION WAS REPORTED ON 13-MAY-2019
     Route: 065
     Dates: start: 2018
  4. INFLECTRA [Concomitant]
     Active Substance: INFLIXIMAB-DYYB
     Dosage: THE LAST DATE OF ADMINISTRATION PRIOR TO THE EVENT WAS ON 08-MAY-2023
     Route: 065
     Dates: start: 20191209

REACTIONS (1)
  - Cholangiocarcinoma [Not Recovered/Not Resolved]

NARRATIVE: CASE EVENT DATE: 20230605
